FAERS Safety Report 7327102-4 (Version None)
Quarter: 2011Q1

REPORT INFORMATION
  Report Type: 
  Country: None (occurrence: None)
  Receive Date: 20110222
  Receipt Date: 20110127
  Transmission Date: 20110831
  Serious: Yes (Hospitalization, Other)
  Sender: FDA-Public Use
  Company Number: 01272011-CG-B

PATIENT
  Age: 51 Year
  Sex: Female
  Weight: 50 kg

DRUGS (32)
  1. CETACAINE TOPICAL ANESTHETIC SPRAY - CETYLITE [Suspect]
     Indication: ANAESTHESIA PROCEDURE
     Dosage: ORAL
     Route: 048
     Dates: start: 20110113
  2. XYLOCAINE VISCOUS [Concomitant]
  3. MEPERIDINE HCL [Concomitant]
  4. DAPTOMYCIN [Concomitant]
  5. APRESOLINE [Concomitant]
  6. VENTOLIN [Concomitant]
  7. BD POSIFLUSH NORMAL SALINE [Concomitant]
  8. ATIVAN [Concomitant]
  9. DUONEB [Concomitant]
  10. MIDAZOLAM [Concomitant]
  11. ATROVENT [Concomitant]
  12. FEOSOL [Concomitant]
  13. TRAZODONE HCL [Concomitant]
  14. VANCOMYCIN [Concomitant]
  15. CEPACOL [Concomitant]
  16. POSSIBLE BENZODIAZEPINE [Concomitant]
  17. ADVAIR DISKUS 100/50 [Concomitant]
  18. DILAUDID [Concomitant]
  19. ZOFRAN IVP [Concomitant]
  20. VERSED [Concomitant]
  21. LORAZEPAM [Concomitant]
  22. HURRICAINE TOPICAL ANESTHETIC SPRAY - BEUTLICH [Suspect]
     Indication: ANAESTHESIA PROCEDURE
     Dosage: ORAL
     Route: 048
     Dates: start: 20110113
  23. SENOKOT [Concomitant]
  24. CYMBALTA [Concomitant]
  25. MUPIROCIN OINTMENT [Concomitant]
  26. CHLORHEXIDINE BODY BATH [Concomitant]
  27. ALBUTEROL [Concomitant]
  28. BACTROBAN [Concomitant]
  29. PERCOCET [Concomitant]
  30. PERCOLONE [Concomitant]
  31. DEMEROL [Concomitant]
  32. BETASEPT SURGICAL SCRUB [Concomitant]

REACTIONS (1)
  - OXYGEN SATURATION DECREASED [None]
